FAERS Safety Report 11201403 (Version 1)
Quarter: 2015Q2

REPORT INFORMATION
  Report Type: Spontaneous
  Country: None (occurrence: None)
  Receive Date: 20150617
  Receipt Date: 20150617
  Transmission Date: 20150821
  Serious: Yes (Other)
  Sender: FDA-Public Use
  Company Number: None

PATIENT
  Age: 46 Year
  Sex: Male
  Weight: 88 kg

DRUGS (1)
  1. ROSUVASTATIN [Suspect]
     Active Substance: ROSUVASTATIN

REACTIONS (8)
  - Tremor [None]
  - Panic attack [None]
  - Asthenia [None]
  - Cold sweat [None]
  - Dizziness [None]
  - Abdominal distension [None]
  - Eructation [None]
  - Chest discomfort [None]

NARRATIVE: CASE EVENT DATE: 20150611
